FAERS Safety Report 5324270-0 (Version None)
Quarter: 2007Q2

REPORT INFORMATION
  Report Type: 
  Country: None (occurrence: None)
  Receive Date: 20070514
  Receipt Date: 20070502
  Transmission Date: 20071010
  Serious: Yes (Other)
  Sender: FDA-Public Use
  Company Number: DE-SHR-DE-2007-010747

PATIENT
  Sex: Male

DRUGS (2)
  1. MAGNEVIST [Suspect]
     Indication: NUCLEAR MAGNETIC RESONANCE IMAGING
     Dosage: 32 ML, 1 DOSE
     Dates: start: 20020911, end: 20020911
  2. OMNISCAN [Suspect]
     Dosage: 18 ML, 1 DOSE
     Route: 042
     Dates: start: 20020918, end: 20020918

REACTIONS (1)
  - NEPHROGENIC FIBROSING DERMOPATHY [None]
